FAERS Safety Report 8616293-0 (Version None)
Quarter: 2012Q3

REPORT INFORMATION
  Report Type: 
  Country: None (occurrence: None)
  Receive Date: 20120823
  Receipt Date: 20120816
  Transmission Date: 20120928
  Serious: Yes (Hospitalization, Other)
  Sender: FDA-Public Use
  Company Number: US-009507513-1203USA00410

PATIENT

DRUGS (6)
  1. FOSAMAX [Suspect]
     Indication: OSTEOPOROSIS
     Dosage: 70 MG, QW
     Route: 048
     Dates: start: 20040101, end: 20100101
  2. ALENDRONATE SODIUM [Suspect]
     Dosage: 70 MG, UNK
     Route: 048
     Dates: start: 20080626
  3. VITAMINS (UNSPECIFIED) [Concomitant]
     Dosage: 1 DF, QD
     Dates: start: 20020101
  4. VITAMIN E [Concomitant]
     Dosage: 1 DF, QD
     Dates: start: 20020101
  5. OMEGA-3-ACID ETHYL ESTERS [Concomitant]
     Dosage: 6 DF, QD
     Dates: start: 20020101
  6. CALCIUM (UNSPECIFIED) [Concomitant]
     Dosage: 1 DF, QD
     Dates: start: 20020101

REACTIONS (30)
  - SENSORY DISTURBANCE [None]
  - OSTEOPOROSIS [None]
  - MACULAR DEGENERATION [None]
  - DERMATITIS CONTACT [None]
  - FEMUR FRACTURE [None]
  - FALL [None]
  - COUGH [None]
  - LUNG NEOPLASM [None]
  - DYSAESTHESIA [None]
  - URINARY TRACT INFECTION [None]
  - HYPERTENSION [None]
  - TONSILLECTOMY [None]
  - BONE DENSITY DECREASED [None]
  - GROIN PAIN [None]
  - DYSPNOEA [None]
  - ABDOMINAL DISCOMFORT [None]
  - MENISCUS REMOVAL [None]
  - CATARACT [None]
  - OSTEOARTHRITIS [None]
  - ABDOMINAL DISTENSION [None]
  - GASTROOESOPHAGEAL REFLUX DISEASE [None]
  - NON-ALCOHOLIC STEATOHEPATITIS [None]
  - SKIN LESION [None]
  - MUSCULOSKELETAL PAIN [None]
  - PRURITUS [None]
  - CONSTIPATION [None]
  - HYPERTRIGLYCERIDAEMIA [None]
  - PAIN IN EXTREMITY [None]
  - IMPAIRED HEALING [None]
  - ARTHRALGIA [None]
